FAERS Safety Report 7360498-6 (Version None)
Quarter: 2011Q1

REPORT INFORMATION
  Report Type: 
  Country: None (occurrence: None)
  Receive Date: 20110318
  Receipt Date: 20110311
  Transmission Date: 20110831
  Serious: Yes (Death)
  Sender: FDA-Public Use
  Company Number: FR-JNJFOC-20100510284

PATIENT
  Sex: Female
  Weight: 57.1 kg

DRUGS (17)
  1. RISPERDAL CONSTA [Suspect]
     Indication: SCHIZOPHRENIA
     Route: 030
  2. RISPERDAL [Suspect]
     Route: 048
  3. PAROXETINE HCL [Concomitant]
     Route: 065
     Dates: start: 20100216, end: 20100330
  4. RISPERDAL [Suspect]
     Indication: SCHIZOPHRENIA
     Route: 048
  5. XANAX [Suspect]
     Indication: ILL-DEFINED DISORDER
     Route: 065
     Dates: start: 20100216, end: 20100324
  6. MEPRONIZINE [Concomitant]
     Route: 065
     Dates: start: 20100216, end: 20100330
  7. VALIUM [Concomitant]
     Indication: PRODUCT USED FOR UNKNOWN INDICATION
     Route: 050
  8. RISPERDAL CONSTA [Suspect]
     Indication: SCHIZOAFFECTIVE DISORDER
     Route: 030
  9. DIPIPERON [Suspect]
     Indication: PRODUCT USED FOR UNKNOWN INDICATION
     Route: 048
  10. MEPRONIZINE [Concomitant]
     Route: 065
     Dates: start: 20100216, end: 20100330
  11. DOXYCYCLINE HYCLATE [Concomitant]
     Indication: PRODUCT USED FOR UNKNOWN INDICATION
     Route: 048
  12. RISPERDAL [Suspect]
     Route: 048
  13. SERESTA [Concomitant]
     Route: 048
  14. LEXOMIL [Concomitant]
     Route: 065
     Dates: start: 20100324, end: 20100414
  15. ARTANE [Concomitant]
     Route: 065
  16. ATHYMIL [Concomitant]
     Route: 048
  17. XANAX [Suspect]
     Route: 065
     Dates: start: 20100216, end: 20100324

REACTIONS (3)
  - MUTISM [None]
  - INAPPROPRIATE SCHEDULE OF DRUG ADMINISTRATION [None]
  - COMPLETED SUICIDE [None]
